FAERS Safety Report 4424557-X (Version None)
Quarter: 2004Q3

REPORT INFORMATION
  Report Type: 
  Country: None (occurrence: None)
  Receive Date: 20040719
  Receipt Date: 20031118
  Transmission Date: 20050211
  Serious: Yes (Hospitalization)
  Sender: FDA-Public Use
  Company Number: 186723

PATIENT
  Age: 35 Year
  Sex: Female
  Weight: 68.0396 kg

DRUGS (4)
  1. AVONEX [Suspect]
     Indication: MULTIPLE SCLEROSIS
     Dosage: 30 MCG QW IM
     Route: 030
     Dates: start: 20030901
  2. MOTRIN [Concomitant]
  3. LEXAPRO [Concomitant]
  4. PROVIGIL [Concomitant]

REACTIONS (3)
  - HEADACHE [None]
  - MULTIPLE SCLEROSIS [None]
  - MULTIPLE SCLEROSIS RELAPSE [None]
